FAERS Safety Report 9385184 (Version 3)
Quarter: 2013Q3

REPORT INFORMATION
  Report Type: Spontaneous
  Country: GB (occurrence: GB)
  Receive Date: 20130705
  Receipt Date: 20130805
  Transmission Date: 20140515
  Serious: Yes (Death, Hospitalization, Other)
  Sender: FDA-Public Use
  Company Number: PHFR2013GB003763

PATIENT
  Age: 74 Year
  Sex: Male
  Weight: 95 kg

DRUGS (5)
  1. CLOZARIL [Suspect]
     Indication: SCHIZOPHRENIA
     Dosage: UNK
     Route: 048
     Dates: start: 20010701
  2. CLOZARIL [Suspect]
     Dosage: 500 MG, DAILY
     Route: 048
  3. DONEPEZIL [Concomitant]
     Indication: DEMENTIA
     Dosage: 10 MG, DAILY
     Route: 048
     Dates: end: 20130627
  4. VENLAFAXINE [Concomitant]
     Indication: DEPRESSION
     Dosage: 150 MG, DAILY
     Route: 048
  5. ARIPIPRAZOLE [Concomitant]
     Indication: SCHIZOPHRENIA
     Dosage: 5 MG, DAILY
     Route: 048

REACTIONS (8)
  - Death [Fatal]
  - Fall [Unknown]
  - Nasopharyngitis [Unknown]
  - Hypothermia [Recovering/Resolving]
  - Oropharyngeal pain [Recovering/Resolving]
  - Circulatory collapse [Recovered/Resolved]
  - Trifascicular block [Not Recovered/Not Resolved]
  - Dementia Alzheimer^s type [Not Recovered/Not Resolved]
